FAERS Safety Report 5083626-4 (Version None)
Quarter: 2006Q3

REPORT INFORMATION
  Report Type: 
  Country: None (occurrence: None)
  Receive Date: 20060818
  Receipt Date: 20060815
  Transmission Date: 20061208
  Serious: Yes (Life-Threatening, Hospitalization, Disabling, Other)
  Sender: FDA-Public Use
  Company Number: US-MERCK-0608USA03603

PATIENT
  Age: 42 Year
  Sex: Female

DRUGS (7)
  1. EMEND [Suspect]
     Indication: NAUSEA
     Route: 048
     Dates: start: 20060802, end: 20060802
  2. EMEND [Suspect]
     Route: 048
     Dates: start: 20060803, end: 20060803
  3. ANZEMET [Concomitant]
     Route: 065
  4. DECADRON [Concomitant]
     Route: 065
  5. OXALIPLATIN [Concomitant]
     Route: 065
  6. LEUCOVORIN CALCIUM [Concomitant]
     Route: 065
  7. FLUOROURACIL INJ [Concomitant]
     Route: 065

REACTIONS (3)
  - ABDOMINAL PAIN [None]
  - CONSTIPATION [None]
  - INTESTINAL PERFORATION [None]
